FAERS Safety Report 13255884 (Version 1)
Quarter: 2017Q1

REPORT INFORMATION
  Report Type: Spontaneous
  Country: US (occurrence: US)
  Receive Date: 20170219
  Receipt Date: 20170219
  Transmission Date: 20170428
  Serious: Yes (Disabling)
  Sender: FDA-Public Use
  Company Number: None

PATIENT
  Age: 6 Year
  Sex: Female
  Weight: 22.5 kg

DRUGS (4)
  1. MIRALAX [Suspect]
     Active Substance: POLYETHYLENE GLYCOL 3350
     Indication: CONSTIPATION
     Dosage: ?          QUANTITY:17 GRAM;?
     Route: 048
     Dates: start: 20150608, end: 20170201
  2. METHAMIZOLE [Concomitant]
     Active Substance: METHIMAZOLE
  3. PROBIOTICS [Concomitant]
     Active Substance: PROBIOTICS NOS
  4. CHILDREN^S VITAMIN [Concomitant]

REACTIONS (9)
  - Mood swings [None]
  - Fear [None]
  - Abnormal behaviour [None]
  - Irritability [None]
  - Emotional disorder [None]
  - Anxiety [None]
  - Crying [None]
  - Sleep disorder [None]
  - Agitation [None]

NARRATIVE: CASE EVENT DATE: 20150630
